FAERS Safety Report 11772088 (Version 1)
Quarter: 2015Q4

REPORT INFORMATION
  Report Type: Spontaneous
  Country: PT (occurrence: PT)
  Receive Date: 20151124
  Receipt Date: 20151124
  Transmission Date: 20160304
  Serious: Yes (Other)
  Sender: FDA-Public Use
  Company Number: PT-MYLANLABS-2015M1041074

PATIENT

DRUGS (2)
  1. BUDESONIDE W/FORMOTEROL [Concomitant]
     Dosage: 160 + 4.5 MUG/DAY
     Route: 055
  2. NITROFURANTOIN. [Suspect]
     Active Substance: NITROFURANTOIN
     Indication: URINARY TRACT INFECTION
     Route: 065

REACTIONS (1)
  - Lung disorder [Recovered/Resolved]
